FAERS Safety Report 8132513-3 (Version None)
Quarter: 2012Q1

REPORT INFORMATION
  Report Type: 
  Country: None (occurrence: None)
  Receive Date: 20120213
  Receipt Date: 20120207
  Transmission Date: 20120608
  Serious: Yes (Hospitalization)
  Sender: FDA-Public Use
  Company Number: US-BAYER-2012-013588

PATIENT
  Age: 35 Year
  Sex: Female
  Weight: 90 kg

DRUGS (10)
  1. YAZ [Suspect]
     Dosage: UNK
     Dates: start: 20090401, end: 20091101
  2. EFFEXOR [Concomitant]
     Indication: DEPRESSION
     Dosage: UNK
     Dates: start: 20060101
  3. ACETAMINOPHEN [Concomitant]
  4. LEVOTHYROXINE SODIUM [Concomitant]
     Indication: THYROID DISORDER
     Dosage: UNK
  5. PREVACID [Concomitant]
  6. MOTRIN [Concomitant]
     Indication: HEADACHE
     Dosage: UNK
  7. PRAVASTATIN [Concomitant]
     Indication: BLOOD CHOLESTEROL INCREASED
     Dosage: UNK
  8. ZANTAC [Concomitant]
  9. FISH OIL [Concomitant]
     Indication: BLOOD CHOLESTEROL ABNORMAL
  10. HYDROCODONE BITARTRATE AND ACETAMINOPHEN [Concomitant]
     Indication: ARTHRALGIA
     Dosage: UNK
     Dates: start: 20060101

REACTIONS (4)
  - SUPERIOR SAGITTAL SINUS THROMBOSIS [None]
  - CEREBRAL THROMBOSIS [None]
  - EYE DISORDER [None]
  - HEADACHE [None]
